FAERS Safety Report 5760329-1 (Version None)
Quarter: 2008Q2

REPORT INFORMATION
  Report Type: 
  Country: None (occurrence: None)
  Receive Date: 20080605
  Receipt Date: 20080526
  Transmission Date: 20081010
  Serious: Yes (Other)
  Sender: FDA-Public Use
  Company Number: JP-PFIZER INC-2008001950

PATIENT
  Sex: Female

DRUGS (17)
  1. CELECOX [Suspect]
     Indication: RHEUMATOID ARTHRITIS
     Dosage: DAILY DOSE:400MG
     Route: 048
     Dates: start: 20070719, end: 20070822
  2. PROGRAF [Suspect]
     Indication: RHEUMATOID ARTHRITIS
     Route: 048
     Dates: start: 20070220, end: 20070822
  3. PROGRAF [Suspect]
     Dosage: TEXT:2 (MG)/DAY
     Route: 048
     Dates: start: 20070320, end: 20070416
  4. PROGRAF [Suspect]
     Dosage: TEXT:3 (MG)/DAY
     Route: 048
  5. RIMATIL [Suspect]
     Indication: RHEUMATOID ARTHRITIS
     Route: 048
     Dates: start: 20060718, end: 20070822
  6. RHEUMATREX [Suspect]
     Indication: RHEUMATOID ARTHRITIS
     Dosage: DAILY DOSE:4MG-FREQ:4MG/WEEK
     Route: 048
     Dates: start: 20061128, end: 20070822
  7. ULCERLMIN [Concomitant]
     Indication: GASTRIC ULCER
     Route: 048
     Dates: start: 20070527, end: 20070602
  8. LEVOFLOXACIN [Concomitant]
     Indication: PYELONEPHRITIS ACUTE
     Dosage: TEXT:300 (MG)/DAY
     Route: 048
     Dates: start: 20070619, end: 20070709
  9. RABEPRAZOLE SODIUM [Concomitant]
     Indication: GASTRIC ULCER
     Route: 048
     Dates: start: 20070527, end: 20070602
  10. PERINDOPRIL ERBUMINE [Concomitant]
     Indication: HYPERTENSION
     Route: 048
     Dates: start: 19960423, end: 20070822
  11. ADALAT [Concomitant]
     Indication: HYPERTENSION
     Dates: start: 20060226, end: 20070822
  12. LIPIDIL [Concomitant]
     Indication: HYPERCHOLESTEROLAEMIA
     Route: 048
     Dates: start: 20050530, end: 20070822
  13. ALL OTHER THERAPEUTIC PRODUCTS [Concomitant]
     Indication: GASTRITIS
     Dates: start: 19960423, end: 20070822
  14. SELBEX [Concomitant]
     Indication: GASTRITIS
     Route: 048
     Dates: start: 20050307, end: 20070822
  15. PREDONINE [Concomitant]
     Indication: RHEUMATOID ARTHRITIS
     Dates: start: 20051001, end: 20070822
  16. LEVOFLOXACIN [Concomitant]
     Indication: PYELONEPHRITIS
     Route: 048
     Dates: start: 20070619, end: 20070709
  17. VOLTAREN [Concomitant]
     Indication: RHEUMATOID ARTHRITIS
     Dosage: DAILY DOSE:75MG-TEXT:DIVIDED INTO 2 DOSES.

REACTIONS (1)
  - LUNG DISORDER [None]
